FAERS Safety Report 5285325-2 (Version None)
Quarter: 2007Q1

REPORT INFORMATION
  Report Type: 
  Country: None (occurrence: None)
  Receive Date: 20070328
  Receipt Date: 20070314
  Transmission Date: 20070707
  Serious: Yes (Life-Threatening, Hospitalization)
  Sender: FDA-Public Use
  Company Number: 2007EU000647

PATIENT
  Age: 69 Year
  Sex: Female

DRUGS (3)
  1. PROGRAF [Suspect]
     Indication: RENAL TRANSPLANT
     Dosage: 1.5 MG, BID, 0.00 MG, D
     Dates: start: 20040901
  2. PREDNISOLONE [Suspect]
     Dosage: 5 MG, D
     Dates: start: 20040901
  3. GLIQUIDONE [Concomitant]

REACTIONS (24)
  - ACUTE HEPATIC FAILURE [None]
  - ATRIAL FIBRILLATION [None]
  - BLOOD CULTURE POSITIVE [None]
  - BUNDLE BRANCH BLOCK LEFT [None]
  - CYTOMEGALOVIRUS COLITIS [None]
  - DIABETES MELLITUS [None]
  - DISORIENTATION [None]
  - DRUG TOXICITY [None]
  - DYSARTHRIA [None]
  - ERYSIPELAS [None]
  - HAEMODIALYSIS [None]
  - HAEMORRHOIDAL HAEMORRHAGE [None]
  - NERVOUS SYSTEM DISORDER [None]
  - NO THERAPEUTIC RESPONSE [None]
  - PAIN [None]
  - PLEURAL EFFUSION [None]
  - PSEUDOMEMBRANOUS COLITIS [None]
  - PULMONARY OEDEMA [None]
  - RENAL FAILURE ACUTE [None]
  - SEPTIC SHOCK [None]
  - SINUS TACHYCARDIA [None]
  - SKIN ULCER [None]
  - UROSEPSIS [None]
  - WOUND INFECTION PSEUDOMONAS [None]
